FAERS Safety Report 20879552 (Version 1)
Quarter: 2022Q2

REPORT INFORMATION
  Report Type: Spontaneous
  Country: CN (occurrence: CN)
  Receive Date: 20220526
  Receipt Date: 20220526
  Transmission Date: 20220721
  Serious: Yes (Hospitalization, Other)
  Sender: FDA-Public Use
  Company Number: CN-PFIZER INC-202200744129

PATIENT
  Age: 8 Year
  Sex: Male
  Weight: 31 kg

DRUGS (9)
  1. METHOTREXATE [Suspect]
     Active Substance: METHOTREXATE
     Indication: Non-Hodgkin^s lymphoma
     Dosage: 3.21 G, 1X/DAY
     Route: 041
     Dates: start: 20220506, end: 20220506
  2. METHOTREXATE [Suspect]
     Active Substance: METHOTREXATE
     Indication: Non-Hodgkin^s lymphoma
     Dosage: 15.0 MG, 1X/DAY
     Route: 037
     Dates: start: 20220429, end: 20220429
  3. CYCLOPHOSPHAMIDE [Suspect]
     Active Substance: CYCLOPHOSPHAMIDE
     Indication: Non-Hodgkin^s lymphoma
     Dosage: 0.32 G, 1X/DAY
     Route: 041
     Dates: start: 20220429, end: 20220429
  4. CYCLOPHOSPHAMIDE [Suspect]
     Active Substance: CYCLOPHOSPHAMIDE
     Dosage: 0.267 G, 2X/DAY
     Route: 041
     Dates: start: 20220507, end: 20220509
  5. DAUNORUBICIN HYDROCHLORIDE [Suspect]
     Active Substance: DAUNORUBICIN HYDROCHLORIDE
     Indication: Non-Hodgkin^s lymphoma
     Dosage: 32.0 MG, 1X/DAY
     Route: 041
     Dates: start: 20220507, end: 20220508
  6. VINCRISTINE SULFATE [Suspect]
     Active Substance: VINCRISTINE SULFATE
     Indication: Non-Hodgkin^s lymphoma
     Dosage: 1.07 MG, 1X/DAY
     Route: 041
     Dates: start: 20220429, end: 20220429
  7. VINCRISTINE SULFATE [Suspect]
     Active Substance: VINCRISTINE SULFATE
     Dosage: 2.00 MG, 1X/DAY
     Route: 041
     Dates: start: 20220506, end: 20220506
  8. PREDNISONE ACETATE [Concomitant]
     Active Substance: PREDNISONE ACETATE
     Indication: Non-Hodgkin^s lymphoma
     Dosage: 6.5 TABLETS, 1X/DAY
     Route: 048
     Dates: start: 20220428, end: 20220513
  9. PREDNISONE ACETATE [Concomitant]
     Active Substance: PREDNISONE ACETATE
     Dosage: 6.0 TABLETS, 1X/DAY
     Route: 048
     Dates: start: 20220428, end: 20220513

REACTIONS (3)
  - Liver injury [Recovering/Resolving]
  - Myelosuppression [Recovering/Resolving]
  - Infection [Recovering/Resolving]

NARRATIVE: CASE EVENT DATE: 20220515
